FAERS Safety Report 15772904 (Version 4)
Quarter: 2025Q2

REPORT INFORMATION
  Report Type: Report from Study
  Country: US (occurrence: US)
  Receive Date: 20181228
  Receipt Date: 20250619
  Transmission Date: 20250716
  Serious: No
  Sender: TAKEDA
  Company Number: US-SHIRE-US201849212

PATIENT
  Age: 31 Year
  Sex: Female
  Weight: 56.689 kg

DRUGS (17)
  1. VELAGLUCERASE ALFA [Suspect]
     Active Substance: VELAGLUCERASE ALFA
     Indication: Gaucher^s disease
     Dosage: 3600 INTERNATIONAL UNIT, Q2WEEKS
     Dates: start: 20170412
  2. VELAGLUCERASE ALFA [Suspect]
     Active Substance: VELAGLUCERASE ALFA
     Dosage: 60 INTERNATIONAL UNIT/KILOGRAM, Q2WEEKS
  3. VELAGLUCERASE ALFA [Suspect]
     Active Substance: VELAGLUCERASE ALFA
     Dosage: UNK UNK, 2/MONTH
  4. ATIVAN [Concomitant]
     Active Substance: LORAZEPAM
     Indication: Product used for unknown indication
  5. DIAZEPAM [Concomitant]
     Active Substance: DIAZEPAM
     Indication: Product used for unknown indication
  6. MORPHINE [Concomitant]
     Active Substance: MORPHINE
     Indication: Product used for unknown indication
  7. CLONIDINE [Concomitant]
     Active Substance: CLONIDINE
     Indication: Product used for unknown indication
  8. ONDANSETRON [Concomitant]
     Active Substance: ONDANSETRON
     Indication: Product used for unknown indication
  9. PROMETHAZINE [Concomitant]
     Active Substance: PROMETHAZINE HYDROCHLORIDE
     Indication: Product used for unknown indication
  10. HEPARIN [Concomitant]
     Active Substance: HEPARIN SODIUM
     Indication: Product used for unknown indication
  11. SODIUM CHLORIDE [Concomitant]
     Active Substance: SODIUM CHLORIDE
     Indication: Product used for unknown indication
  12. DIPHENHYDRAMINE HYDROCHLORIDE [Concomitant]
     Active Substance: DIPHENHYDRAMINE HYDROCHLORIDE
     Indication: Product used for unknown indication
  13. METHYLPREDNISOLONE [Concomitant]
     Active Substance: METHYLPREDNISOLONE
     Indication: Product used for unknown indication
  14. STERILE WATER [Concomitant]
     Active Substance: WATER
     Indication: Product used for unknown indication
  15. EPINEPHRINE [Concomitant]
     Active Substance: EPINEPHRINE
     Indication: Product used for unknown indication
  16. LIDOCAINE [Concomitant]
     Active Substance: LIDOCAINE
     Indication: Product used for unknown indication
  17. DILAUDID [Concomitant]
     Active Substance: HYDROMORPHONE HYDROCHLORIDE
     Indication: Product used for unknown indication

REACTIONS (2)
  - Drug ineffective [Unknown]
  - Product dose omission issue [Unknown]

NARRATIVE: CASE EVENT DATE: 20211103
